FAERS Safety Report 5479667-5 (Version None)
Quarter: 2007Q4

REPORT INFORMATION
  Report Type: 
  Country: None (occurrence: None)
  Receive Date: 20071008
  Receipt Date: 20071002
  Transmission Date: 20080405
  Serious: Yes (Other)
  Sender: FDA-Public Use
  Company Number: B0489731A

PATIENT
  Age: 54 Year
  Sex: Female

DRUGS (3)
  1. TYKERB [Suspect]
  2. XELODA [Concomitant]
  3. VOLTAREN [Concomitant]
     Dosage: 50MG TWICE PER DAY

REACTIONS (2)
  - COLITIS [None]
  - DIARRHOEA HAEMORRHAGIC [None]
